FAERS Safety Report 6845818-0 (Version None)
Quarter: 2010Q3

REPORT INFORMATION
  Report Type: 
  Country: None (occurrence: None)
  Receive Date: 20100715
  Receipt Date: 20070828
  Transmission Date: 20110219
  Serious: No
  Sender: FDA-Public Use
  Company Number: US-PFIZER INC-2007072980

PATIENT
  Sex: Male
  Weight: 99.8 kg

DRUGS (4)
  1. CHANTIX [Suspect]
     Indication: SMOKING CESSATION THERAPY
     Dates: start: 20070818, end: 20070826
  2. EFFEXOR [Concomitant]
     Indication: DEPRESSION
  3. ANTIHYPERTENSIVES [Concomitant]
     Indication: HYPERTENSION
  4. VITAMINS [Concomitant]

REACTIONS (7)
  - DIARRHOEA [None]
  - HYPERHIDROSIS [None]
  - INSOMNIA [None]
  - NAUSEA [None]
  - PYREXIA [None]
  - RETCHING [None]
  - VOMITING [None]
